FAERS Safety Report 19292785 (Version 2)
Quarter: 2021Q2

REPORT INFORMATION
  Report Type: Spontaneous
  Country: JP (occurrence: JP)
  Receive Date: 20210524
  Receipt Date: 20210614
  Transmission Date: 20210717
  Serious: Yes (Other)
  Sender: FDA-Public Use
  Company Number: NVSJ2021JP004111

PATIENT
  Age: 47 Year
  Sex: Male

DRUGS (14)
  1. PEMBROLIZUMAB. [Suspect]
     Active Substance: PEMBROLIZUMAB
     Indication: MALIGNANT MELANOMA
     Dosage: UNK
     Route: 065
     Dates: start: 201905
  2. ENCORAFENIB [Suspect]
     Active Substance: ENCORAFENIB
     Indication: MALIGNANT MELANOMA
     Dosage: CONCOMITANTLY USED WITH BINIMETINIB
     Route: 065
     Dates: start: 201911
  3. MEKINIST [Suspect]
     Active Substance: TRAMETINIB DIMETHYL SULFOXIDE
     Dosage: 2 MG
     Route: 048
     Dates: start: 20200615, end: 20200709
  4. NIVOLUMAB [Suspect]
     Active Substance: NIVOLUMAB
     Indication: PRODUCT USED FOR UNKNOWN INDICATION
     Dosage: UNK
     Route: 065
     Dates: start: 201711
  5. TAFINLAR [Suspect]
     Active Substance: DABRAFENIB MESYLATE
     Indication: MALIGNANT MELANOMA
     Dosage: UNK
     Route: 048
     Dates: start: 201802
  6. TAFINLAR [Suspect]
     Active Substance: DABRAFENIB MESYLATE
     Dosage: 300 MG
     Route: 048
     Dates: start: 20200615, end: 20200709
  7. ENCORAFENIB [Suspect]
     Active Substance: ENCORAFENIB
     Dosage: CONCOMITANTLY USED WITH BINIMETINIB
     Route: 065
     Dates: start: 202001
  8. BINIMETINIB [Suspect]
     Active Substance: BINIMETINIB
     Dosage: CONCOMITANTLY USED WITH ENCORAFENIB
     Route: 065
     Dates: start: 202001
  9. IPILIMUMAB [Suspect]
     Active Substance: IPILIMUMAB
     Indication: PRODUCT USED FOR UNKNOWN INDICATION
     Dosage: CONCOMITANTLY USED WITH NIVOLUMAB, 4 TIMES
     Route: 065
     Dates: start: 202003
  10. BINIMETINIB [Suspect]
     Active Substance: BINIMETINIB
     Indication: MALIGNANT MELANOMA
     Dosage: CONCOMITANTLY USED WITH ENCORAFENIB
     Route: 065
     Dates: start: 201911
  11. NIVOLUMAB [Suspect]
     Active Substance: NIVOLUMAB
     Dosage: CONCOMITANTLY USED WITH IPILIMUMAB, 4 TIMES
     Route: 065
     Dates: start: 202003
  12. TAFINLAR [Suspect]
     Active Substance: DABRAFENIB MESYLATE
     Dosage: 200 MG
     Route: 048
     Dates: start: 20200714
  13. MEKINIST [Suspect]
     Active Substance: TRAMETINIB DIMETHYL SULFOXIDE
     Indication: MALIGNANT MELANOMA
     Dosage: UNK
     Route: 065
     Dates: start: 201802
  14. MEKINIST [Suspect]
     Active Substance: TRAMETINIB DIMETHYL SULFOXIDE
     Dosage: 1.5 MG
     Route: 048
     Dates: start: 20200714

REACTIONS (4)
  - Malignant melanoma [Unknown]
  - Metastases to skin [Unknown]
  - Malignant neoplasm progression [Unknown]
  - Liver disorder [Recovered/Resolved]

NARRATIVE: CASE EVENT DATE: 201905
